FAERS Safety Report 5780893-6 (Version None)
Quarter: 2008Q2

REPORT INFORMATION
  Report Type: 
  Country: None (occurrence: None)
  Receive Date: 20080620
  Receipt Date: 20080613
  Transmission Date: 20081010
  Serious: Yes (Other)
  Sender: FDA-Public Use
  Company Number: US-PFIZER INC-2008035192

PATIENT
  Sex: Female

DRUGS (4)
  1. LIPITOR [Suspect]
     Indication: BLOOD CHOLESTEROL INCREASED
     Route: 048
  2. PLAVIX [Concomitant]
  3. FUROSEMIDE [Concomitant]
  4. METOPROLOL [Concomitant]

REACTIONS (4)
  - BLINDNESS UNILATERAL [None]
  - EYE DISORDER [None]
  - ORBITAL CYST [None]
  - VISION BLURRED [None]
